FAERS Safety Report 18172080 (Version 1)
Quarter: 2020Q3

REPORT INFORMATION
  Report Type: Spontaneous
  Country: US (occurrence: US)
  Receive Date: 20200820
  Receipt Date: 20200820
  Transmission Date: 20201103
  Serious: No
  Sender: FDA-Public Use
  Company Number: US-SA-2020SA219500

PATIENT

DRUGS (2)
  1. AUBAGIO [Suspect]
     Active Substance: TERIFLUNOMIDE
  2. GLATIRAMER [Concomitant]
     Active Substance: GLATIRAMER
     Dosage: UNK
     Dates: start: 2004

REACTIONS (2)
  - Nausea [Unknown]
  - Diarrhoea [Unknown]
